FAERS Safety Report 19205785 (Version 1)
Quarter: 2021Q2

REPORT INFORMATION
  Report Type: Spontaneous
  Country: US (occurrence: US)
  Receive Date: 20210503
  Receipt Date: 20210503
  Transmission Date: 20210717
  Serious: No
  Sender: FDA-Public Use
  Company Number: US-FARMAPROD-202103-0305

PATIENT
  Sex: Female

DRUGS (15)
  1. ALPRAZOLAM. [Concomitant]
     Active Substance: ALPRAZOLAM
  2. VITAMIN D?400 [Concomitant]
  3. OXERVATE [Suspect]
     Active Substance: CENEGERMIN-BKBJ
     Indication: NEUROTROPHIC KERATOPATHY
     Route: 047
     Dates: start: 20210215
  4. AMLODIPINE BESYLATE. [Concomitant]
     Active Substance: AMLODIPINE BESYLATE
  5. ATENOLOL. [Concomitant]
     Active Substance: ATENOLOL
  6. SYNTHROID [Concomitant]
     Active Substance: LEVOTHYROXINE SODIUM
  7. AMIODARONE HCL [Concomitant]
     Active Substance: AMIODARONE HYDROCHLORIDE
  8. XALATAN [Concomitant]
     Active Substance: LATANOPROST
  9. ELIQUIS [Concomitant]
     Active Substance: APIXABAN
  10. ACICLOVIR [Concomitant]
     Active Substance: ACYCLOVIR
  11. OXERVATE [Suspect]
     Active Substance: CENEGERMIN-BKBJ
     Indication: HERPES OPHTHALMIC
  12. VITAMIN B1 [Concomitant]
     Active Substance: THIAMINE HYDROCHLORIDE
  13. VITAMINE C [Concomitant]
     Active Substance: ASCORBIC ACID
  14. ZINC. [Concomitant]
     Active Substance: ZINC
  15. LOSARTAN POTASSIUM. [Concomitant]
     Active Substance: LOSARTAN POTASSIUM

REACTIONS (2)
  - Eye pain [Unknown]
  - Eye irritation [Unknown]
